FAERS Safety Report 19509135 (Version 2)
Quarter: 2021Q3

REPORT INFORMATION
  Report Type: Spontaneous
  Country: JP (occurrence: JP)
  Receive Date: 20210709
  Receipt Date: 20210803
  Transmission Date: 20211014
  Serious: Yes (Hospitalization, Other)
  Sender: FDA-Public Use
  Company Number: JP-SA-2021SA216719

PATIENT
  Age: 74 Year
  Sex: Female

DRUGS (3)
  1. ELPLAT [Suspect]
     Active Substance: OXALIPLATIN
     Indication: RECTAL CANCER
     Dosage: UNK
  2. BEVACIZUMAB. [Suspect]
     Active Substance: BEVACIZUMAB
     Indication: RECTAL CANCER
     Dosage: ONCE IN 3WEEKS
     Route: 041
  3. CAPECITABINE. [Suspect]
     Active Substance: CAPECITABINE
     Indication: RECTAL CANCER
     Dosage: UNK

REACTIONS (5)
  - Biliary colic [Recovered/Resolved]
  - Wound dehiscence [Unknown]
  - Cholelithiasis [Recovered/Resolved]
  - Acute abdomen [Recovered/Resolved]
  - Cholecystitis [Recovered/Resolved]
